FAERS Safety Report 9143022 (Version 1)
Quarter: 2013Q1

REPORT INFORMATION
  Report Type: Spontaneous
  Country: US (occurrence: US)
  Receive Date: 20130306
  Receipt Date: 20130306
  Transmission Date: 20140127
  Serious: Yes (Other)
  Sender: FDA-Public Use
  Company Number: US-ENDO PHARMACEUTICALS INC.-OPER20120505

PATIENT
  Sex: Male

DRUGS (1)
  1. OPANA ER 30MG [Suspect]
     Indication: DRUG DIVERSION
     Dosage: 30 MG
     Route: 065

REACTIONS (1)
  - Drug diversion [Unknown]
